FAERS Safety Report 13598254 (Version 3)
Quarter: 2017Q2

REPORT INFORMATION
  Report Type: Spontaneous
  Country: US (occurrence: US)
  Receive Date: 20170531
  Receipt Date: 20170626
  Transmission Date: 20170830
  Serious: No
  Sender: FDA-Public Use
  Company Number: US-ELI_LILLY_AND_COMPANY-US201705011984

PATIENT
  Sex: Female
  Weight: 76.19 kg

DRUGS (1)
  1. HUMALOG [Suspect]
     Active Substance: INSULIN LISPRO
     Indication: TYPE 1 DIABETES MELLITUS
     Dosage: 110 U, DAILY
     Dates: start: 20170504, end: 20170607

REACTIONS (2)
  - Paraesthesia oral [Recovered/Resolved]
  - Infusion site pruritus [Recovered/Resolved]
